FAERS Safety Report 21016700 (Version 1)
Quarter: 2022Q2

REPORT INFORMATION
  Report Type: Spontaneous
  Country: US (occurrence: None)
  Receive Date: 20220627
  Receipt Date: 20220627
  Transmission Date: 20220721
  Serious: Yes (unspecified)
  Sender: FDA-Public Use
  Company Number: None

PATIENT
  Age: 32 Year
  Sex: Male
  Weight: 169 kg

DRUGS (1)
  1. TOPAMAX [Suspect]
     Active Substance: TOPIRAMATE
     Indication: Headache
     Dosage: 1 TAB EVERY DAY PO?
     Route: 048
     Dates: start: 20220301, end: 20220312

REACTIONS (4)
  - Blindness [None]
  - Myopia [None]
  - Angle closure glaucoma [None]
  - Intraocular pressure increased [None]

NARRATIVE: CASE EVENT DATE: 20220313
